FAERS Safety Report 15675429 (Version 3)
Quarter: 2019Q1

REPORT INFORMATION
  Report Type: Spontaneous
  Country: CH (occurrence: CH)
  Receive Date: 20181130
  Receipt Date: 20190301
  Transmission Date: 20190417
  Serious: Yes (Death)
  Sender: FDA-Public Use
  Company Number: CH-ROCHE-2219688

PATIENT
  Age: 78 Year
  Sex: Female
  Weight: 66 kg

DRUGS (16)
  1. PERJETA [Interacting]
     Active Substance: PERTUZUMAB
     Route: 041
     Dates: start: 20180905
  2. HERCEPTIN [Suspect]
     Active Substance: TRASTUZUMAB
     Indication: HER-2 POSITIVE BREAST CANCER
     Route: 042
     Dates: start: 20180928, end: 20181018
  3. XARELTO [Concomitant]
     Active Substance: RIVAROXABAN
     Indication: FACTOR V LEIDEN MUTATION
     Route: 048
     Dates: end: 20181108
  4. ONDANSETRON [Concomitant]
     Active Substance: ONDANSETRON
     Indication: CHEMOTHERAPY
     Route: 042
     Dates: start: 20180928
  5. MONURIL [Concomitant]
     Active Substance: FOSFOMYCIN TROMETHAMINE
     Indication: URINARY TRACT INFECTION
     Route: 048
     Dates: start: 20181025
  6. FORTECORTIN [Concomitant]
     Active Substance: DEXAMETHASONE
     Indication: CHEMOTHERAPY
     Route: 048
  7. PACLITAXEL. [Interacting]
     Active Substance: PACLITAXEL
     Route: 041
     Dates: start: 20180905
  8. TAVANIC [Concomitant]
     Active Substance: LEVOFLOXACIN
     Indication: PNEUMONIA
     Route: 048
     Dates: start: 20181030
  9. TAZOBAC [Concomitant]
     Active Substance: PIPERACILLIN SODIUM\TAZOBACTAM SODIUM
  10. BACTRIM [Concomitant]
     Active Substance: SULFAMETHOXAZOLE\TRIMETHOPRIM
     Route: 065
     Dates: start: 20181103
  11. HERCEPTIN [Interacting]
     Active Substance: TRASTUZUMAB
     Route: 042
     Dates: start: 20180905
  12. PERJETA [Interacting]
     Active Substance: PERTUZUMAB
     Indication: HER-2 POSITIVE BREAST CANCER
     Route: 042
     Dates: start: 20180928, end: 20181018
  13. PACLITAXEL. [Interacting]
     Active Substance: PACLITAXEL
     Indication: HER-2 POSITIVE BREAST CANCER
     Route: 042
     Dates: start: 20180928, end: 20181018
  14. SERTRALIN [Concomitant]
     Active Substance: SERTRALINE HYDROCHLORIDE
     Route: 048
     Dates: end: 201811
  15. CYCLOPHOSPHAMIDE. [Concomitant]
     Active Substance: CYCLOPHOSPHAMIDE
     Dosage: 600 MG/M2 EVERY 14 DAYS
     Route: 065
  16. DOXORUBICIN [Concomitant]
     Active Substance: DOXORUBICIN
     Route: 041
     Dates: start: 20180718, end: 20180905

REACTIONS (5)
  - Respiratory failure [Fatal]
  - Pneumonitis chemical [Fatal]
  - Pulmonary embolism [Fatal]
  - Pneumonia [Fatal]
  - Drug interaction [Fatal]

NARRATIVE: CASE EVENT DATE: 20181030
